FAERS Safety Report 21168438 (Version 2)
Quarter: 2022Q3

REPORT INFORMATION
  Report Type: Spontaneous
  Country: CA (occurrence: CA)
  Receive Date: 20220803
  Receipt Date: 20220812
  Transmission Date: 20221027
  Serious: Yes (Death, Other)
  Sender: FDA-Public Use
  Company Number: CA-PFIZER INC-2017344417

PATIENT
  Age: 73 Year
  Sex: Female

DRUGS (1)
  1. XELJANZ [Suspect]
     Active Substance: TOFACITINIB CITRATE
     Indication: Rheumatoid arthritis
     Dosage: 5 MG, 2X/DAY
     Route: 048
     Dates: start: 20170630

REACTIONS (10)
  - Death [Fatal]
  - Knee arthroplasty [Unknown]
  - Drug ineffective [Unknown]
  - Synovial cyst [Recovering/Resolving]
  - Synovial rupture [Recovering/Resolving]
  - Peripheral swelling [Recovering/Resolving]
  - Stress [Unknown]
  - Limb discomfort [Unknown]
  - Weight increased [Unknown]
  - Dyspnoea [Unknown]

NARRATIVE: CASE EVENT DATE: 20180112
